FAERS Safety Report 9784741 (Version 2)
Quarter: 2014Q1

REPORT INFORMATION
  Report Type: Spontaneous
  Country: FR (occurrence: FR)
  Receive Date: 20131227
  Receipt Date: 20140313
  Transmission Date: 20141002
  Serious: Yes (Other)
  Sender: FDA-Public Use
  Company Number: FR-ASTRAZENECA-2013SE92795

PATIENT
  Age: 11086 Day
  Sex: Female

DRUGS (3)
  1. XEROQUEL [Suspect]
     Indication: BIPOLAR DISORDER
     Route: 048
     Dates: start: 2012, end: 201311
  2. EFFEXOR [Suspect]
     Indication: ANXIETY
     Route: 048
     Dates: start: 2012, end: 201311
  3. LEVOTHYROX [Concomitant]
     Route: 048

REACTIONS (3)
  - Exposure during pregnancy [Recovered/Resolved]
  - Retained products of conception [Recovered/Resolved]
  - Therapy cessation [Unknown]
